FAERS Safety Report 15587093 (Version 1)
Quarter: 2018Q4

REPORT INFORMATION
  Report Type: Spontaneous
  Country: US (occurrence: US)
  Receive Date: 20181106
  Receipt Date: 20181106
  Transmission Date: 20190205
  Serious: No
  Sender: FDA-Public Use
  Company Number: None

PATIENT
  Age: 71 Year
  Sex: Male
  Weight: 73.8 kg

DRUGS (1)
  1. BYDUREON BCISE [Suspect]
     Active Substance: EXENATIDE
     Indication: DIABETES MELLITUS
     Dosage: 4 INJECTION(S); WEEKLY IN ABDOMINAL AREA?
     Dates: start: 20180902, end: 20181028

REACTIONS (1)
  - Injection site mass [None]

NARRATIVE: CASE EVENT DATE: 20180909
